FAERS Safety Report 9046470 (Version 1)
Quarter: 2013Q1

REPORT INFORMATION
  Report Type: Report from Study
  Country: US (occurrence: US)
  Receive Date: 20130130
  Receipt Date: 20130130
  Transmission Date: 20140127
  Serious: No
  Sender: FDA-Public Use
  Company Number: US-ABBOTT-12P-163-0970867-00

PATIENT
  Age: 50 Year
  Sex: Female

DRUGS (6)
  1. HUMIRA 40 MG/0.8 ML PEN [Suspect]
     Indication: ANKYLOSING SPONDYLITIS
  2. TRAMADOL [Concomitant]
     Indication: PAIN
  3. DILTIAZEM [Concomitant]
     Indication: BLOOD PRESSURE
  4. DILTIAZEM [Concomitant]
     Indication: REYNOLD^S SYNDROME
  5. ADVIL [Concomitant]
     Indication: PAIN
  6. BIRTH CONTROL PILL [Concomitant]
     Indication: MENSTRUAL DISORDER

REACTIONS (2)
  - Menorrhagia [Recovered/Resolved]
  - Drug ineffective [Not Recovered/Not Resolved]
